FAERS Safety Report 8495880-7 (Version None)
Quarter: 2012Q3

REPORT INFORMATION
  Report Type: 
  Country: None (occurrence: None)
  Receive Date: 20120709
  Receipt Date: 20120703
  Transmission Date: 20120928
  Serious: No
  Sender: FDA-Public Use
  Company Number: US-PFIZER INC-2012159769

PATIENT
  Sex: Male

DRUGS (1)
  1. ADVIL PM [Suspect]
     Indication: INSOMNIA
     Dosage: 400/76 MG (TWO CAPLETS OF 200/38MG CAPLETS) , 1X/DAY
     Route: 048
     Dates: start: 20120629, end: 20120702

REACTIONS (7)
  - STRESS [None]
  - HYPERSENSITIVITY [None]
  - DYSPNOEA [None]
  - URTICARIA [None]
  - FEELING ABNORMAL [None]
  - BLISTER [None]
  - SOMNOLENCE [None]
